FAERS Safety Report 9337751 (Version 2)
Quarter: 2013Q4

REPORT INFORMATION
  Report Type: Spontaneous
  Country: US (occurrence: US)
  Receive Date: 20130607
  Receipt Date: 20131118
  Transmission Date: 20140711
  Serious: Yes (Hospitalization, Other)
  Sender: FDA-Public Use
  Company Number: US-B.I. PHARMACEUTICALS,INC./RIDGEFIELD-2013-BI-15912BP

PATIENT
  Sex: Female
  Weight: 81.65 kg

DRUGS (25)
  1. PRADAXA [Suspect]
     Indication: ANTICOAGULANT THERAPY
     Dosage: 300 MG
     Route: 048
     Dates: start: 20120114, end: 20120210
  2. PRADAXA [Suspect]
     Indication: ATRIAL FIBRILLATION
  3. NAPROXEN [Suspect]
     Indication: OSTEOARTHRITIS
     Dosage: 1000 MG
     Route: 048
  4. ASPIRIN [Suspect]
     Dosage: 81 MG
  5. XANAX [Concomitant]
     Dosage: 0.5 MG
  6. CRESTOR [Concomitant]
     Dosage: 10 MG
  7. MULTIVITAMINS [Concomitant]
  8. PREDNISONE [Concomitant]
  9. DUONEB [Concomitant]
     Indication: CHRONIC OBSTRUCTIVE PULMONARY DISEASE
     Route: 055
  10. PROAIR [Concomitant]
  11. LISINOPRIL/HCT [Concomitant]
  12. METOPROLOL [Concomitant]
     Dosage: 50 MG
  13. POTASSIUM CHLORIDE [Concomitant]
     Dosage: 80 MEQ
     Route: 048
  14. PROPAFENONE [Concomitant]
     Indication: ATRIAL FIBRILLATION
     Dosage: 300 MG
     Route: 048
  15. PREVACID [Concomitant]
     Dosage: 30 MG
     Route: 048
  16. CARDIZEM [Concomitant]
     Indication: ATRIAL FIBRILLATION
     Dosage: 180 MG
  17. ESTRADIOL [Concomitant]
     Dosage: 1 MG
     Route: 048
  18. LOPERAMIDE [Concomitant]
     Indication: DIARRHOEA
  19. OMEGA-3 FISH OIL [Concomitant]
     Indication: HYPERLIPIDAEMIA
     Dosage: 1000 MG
  20. ADVAIR [Concomitant]
  21. TYLENOL [Concomitant]
     Indication: PAIN
  22. TYLENOL [Concomitant]
     Indication: PYREXIA
  23. GUAIFENESIN [Concomitant]
     Indication: COUGH
  24. MAGLOX [Concomitant]
  25. MECLIZINE [Concomitant]
     Indication: VERTIGO

REACTIONS (7)
  - Gastrointestinal haemorrhage [Recovered/Resolved]
  - Haemorrhagic anaemia [Unknown]
  - Coagulopathy [Recovered/Resolved]
  - International normalised ratio increased [Recovered/Resolved]
  - Renal failure acute [Recovered/Resolved]
  - Epistaxis [Recovered/Resolved]
  - Toxicity to various agents [Unknown]
